FAERS Safety Report 4646999-X (Version None)
Quarter: 2005Q2

REPORT INFORMATION
  Report Type: 
  Country: None (occurrence: None)
  Receive Date: 20050331
  Receipt Date: 20050204
  Transmission Date: 20051028
  Serious: No
  Sender: FDA-Public Use
  Company Number: 05P-163-0289859

PATIENT
  Age: 89 Year
  Sex: Female
  Weight: 58.9676 kg

DRUGS (21)
  1. HUMIRA [Suspect]
     Indication: RHEUMATOID ARTHRITIS
     Dosage: 40 MG, 1 IN 1 WK, SUBCUTANEOUS;  40 MG, 1 IN 2 WK, SUBCUTANEOUS
     Route: 058
     Dates: start: 20030101, end: 20040101
  2. HUMIRA [Suspect]
     Indication: RHEUMATOID ARTHRITIS
     Dosage: 40 MG, 1 IN 1 WK, SUBCUTANEOUS;  40 MG, 1 IN 2 WK, SUBCUTANEOUS
     Route: 058
     Dates: start: 20050101, end: 20050206
  3. DARVOCET [Concomitant]
  4. PENTASA [Concomitant]
  5. METHOCARBAMOL [Concomitant]
  6. ACETYLSALICYLIC ACID [Concomitant]
  7. DOCUSATE CALCIUM [Concomitant]
  8. FUROSEMIDE [Concomitant]
  9. POTASSIUM CHLORIDE [Concomitant]
  10. PAROXETINE HYDROCHLORIDE [Concomitant]
  11. CLOPIDOGREL BISULFATE [Concomitant]
  12. AMLODIPINE BESYLATE [Concomitant]
  13. FOLIC ACID [Concomitant]
  14. LANSOPRAZOLE [Concomitant]
  15. SUCRALFATE [Concomitant]
  16. CYANOCOBALAMIN [Concomitant]
  17. CLONAZEPAM [Concomitant]
  18. DURAGESIC-100 [Concomitant]
  19. VICODIN [Concomitant]
  20. LORAZEPAM [Concomitant]
  21. METHOTREXATE [Concomitant]

REACTIONS (1)
  - DECUBITUS ULCER [None]
